FAERS Safety Report 22379775 (Version 2)
Quarter: 2023Q4

REPORT INFORMATION
  Report Type: Report from Study
  Country: CO (occurrence: CO)
  Receive Date: 20230529
  Receipt Date: 20231114
  Transmission Date: 20240109
  Serious: Yes (Hospitalization, Other)
  Sender: FDA-Public Use
  Company Number: CO-TAKEDA-2023TUS027271

PATIENT
  Age: 6 Year
  Sex: Male
  Weight: 8 kg

DRUGS (4)
  1. TEDUGLUTIDE [Suspect]
     Active Substance: TEDUGLUTIDE
     Indication: Short-bowel syndrome
     Dosage: 0.9 MILLIGRAM, QD
     Route: 058
     Dates: start: 20230414
  2. TEDUGLUTIDE [Suspect]
     Active Substance: TEDUGLUTIDE
     Indication: Short-bowel syndrome
     Dosage: 0.9 MILLIGRAM, QD
     Route: 058
     Dates: start: 20230414
  3. TEDUGLUTIDE [Suspect]
     Active Substance: TEDUGLUTIDE
     Indication: Short-bowel syndrome
     Dosage: 0.9 MILLIGRAM, QD
     Route: 058
     Dates: start: 20230414
  4. TEDUGLUTIDE [Suspect]
     Active Substance: TEDUGLUTIDE
     Indication: Short-bowel syndrome
     Dosage: 0.9 MILLIGRAM, QD
     Route: 058
     Dates: start: 20230414

REACTIONS (5)
  - Vascular device infection [Unknown]
  - Weight decreased [Unknown]
  - Product quality issue [Unknown]
  - Product storage error [Unknown]
  - Product prescribing error [Unknown]

NARRATIVE: CASE EVENT DATE: 20230521
